FAERS Safety Report 9637200 (Version 1)
Quarter: 2013Q4

REPORT INFORMATION
  Report Type: Spontaneous
  Country: US (occurrence: US)
  Receive Date: 20131022
  Receipt Date: 20131022
  Transmission Date: 20140711
  Serious: No
  Sender: FDA-Public Use
  Company Number: US-009507513-1310USA009470

PATIENT
  Sex: 0

DRUGS (1)
  1. INTRONA [Suspect]
     Dosage: STRENGTH 50

REACTIONS (1)
  - Laboratory test abnormal [Unknown]
